FAERS Safety Report 7264512-8 (Version None)
Quarter: 2011Q1

REPORT INFORMATION
  Report Type: 
  Country: None (occurrence: None)
  Receive Date: 20110131
  Receipt Date: 20110126
  Transmission Date: 20110831
  Serious: Yes (Other)
  Sender: FDA-Public Use
  Company Number: US-PFIZER INC-2010124847

PATIENT
  Sex: Female
  Weight: 61.22 kg

DRUGS (16)
  1. CHANTIX [Suspect]
     Dosage: 0.5 MG, 1X/DAY
     Route: 048
     Dates: start: 20101101
  2. SAVELLA [Suspect]
     Indication: DEPRESSION
     Dosage: 25 MG, 2X/DAY
     Route: 048
     Dates: start: 20100924, end: 20100927
  3. CYMBALTA [Concomitant]
     Indication: ARTHRITIS
  4. PAMELOR [Concomitant]
     Dosage: UNK
  5. CYMBALTA [Concomitant]
     Indication: DEPRESSION
  6. DILAUDID [Concomitant]
     Indication: PAIN
     Dosage: UNK
  7. OYST-CAL-D [Concomitant]
     Dosage: 500 MG, UNK
  8. CYMBALTA [Concomitant]
     Indication: PAIN
     Dosage: UNK
  9. OPANA [Concomitant]
     Indication: PAIN
     Dosage: UNK
  10. ESTROGEN NOS [Concomitant]
     Dosage: UNK
  11. CHANTIX [Suspect]
     Indication: SMOKING CESSATION THERAPY
     Dosage: 0.5 MG, 1X/DAY
     Route: 048
     Dates: start: 20100501
  12. ROBAXIN [Concomitant]
     Indication: ARTHRITIS
     Dosage: UNK
  13. FOSAMAX [Concomitant]
     Indication: ARTHRITIS
     Dosage: UNK
  14. CHANTIX [Suspect]
     Dosage: 0.5 MG, 1X/DAY
     Route: 048
     Dates: start: 20100801, end: 20100901
  15. SAVELLA [Suspect]
     Indication: FIBROMYALGIA
  16. MELOXICAM [Concomitant]
     Indication: PAIN
     Dosage: UNK

REACTIONS (9)
  - CONSTIPATION [None]
  - DEPRESSION [None]
  - WEIGHT INCREASED [None]
  - CHEST DISCOMFORT [None]
  - SOMNOLENCE [None]
  - ARTHRITIS [None]
  - ANXIETY [None]
  - NIGHTMARE [None]
  - NERVOUSNESS [None]
